FAERS Safety Report 14698890 (Version 4)
Quarter: 2021Q2

REPORT INFORMATION
  Report Type: Report from Study
  Country: US (occurrence: US)
  Receive Date: 20180330
  Receipt Date: 20210507
  Transmission Date: 20210716
  Serious: Yes (Death, Hospitalization, Other)
  Sender: FDA-Public Use
  Company Number: US-BRISTOL-MYERS SQUIBB COMPANY-BMS-2018-027712

PATIENT
  Age: 56 Year
  Sex: Male
  Weight: 123.4 kg

DRUGS (2)
  1. IPILIMUMAB [Suspect]
     Active Substance: IPILIMUMAB
     Indication: MESOTHELIOMA
     Dosage: 1 MG/KG, UNK
     Route: 042
     Dates: start: 20180219
  2. NIVOLUMAB [Suspect]
     Active Substance: NIVOLUMAB
     Indication: MESOTHELIOMA
     Dosage: 240 MG, UNK
     Route: 042
     Dates: start: 20180219

REACTIONS (9)
  - Dyspnoea [Recovering/Resolving]
  - Alanine aminotransferase increased [Recovering/Resolving]
  - Troponin I increased [Recovering/Resolving]
  - Fatigue [Recovering/Resolving]
  - Aspartate aminotransferase increased [Recovering/Resolving]
  - Pneumonitis [Fatal]
  - Encephalopathy [Unknown]
  - Colitis [Recovering/Resolving]
  - Myocarditis [Unknown]

NARRATIVE: CASE EVENT DATE: 20180310
